FAERS Safety Report 24127010 (Version 1)
Quarter: 2024Q3

REPORT INFORMATION
  Report Type: Spontaneous
  Country: US (occurrence: None)
  Receive Date: 20240722
  Receipt Date: 20240722
  Transmission Date: 20241016
  Serious: Yes (Hospitalization)
  Sender: Public
  Company Number: None

PATIENT
  Sex: Male

DRUGS (1)
  1. DEFERASIROX [Suspect]
     Active Substance: DEFERASIROX
     Indication: Basal cell carcinoma
     Dosage: 1000 MG DAILY ORAL
     Route: 048

REACTIONS (5)
  - Fall [None]
  - Dehydration [None]
  - Urinary retention [None]
  - Serum ferritin decreased [None]
  - Cognitive disorder [None]
